FAERS Safety Report 14586877 (Version 1)
Quarter: 2018Q1

REPORT INFORMATION
  Report Type: Spontaneous
  Country: US (occurrence: US)
  Receive Date: 20180228
  Receipt Date: 20180228
  Transmission Date: 20180509
  Serious: Yes (Other)
  Sender: FDA-Public Use
  Company Number: None

PATIENT
  Age: 36 Year
  Sex: Female
  Weight: 58.5 kg

DRUGS (4)
  1. SUMATRIPTAN SUCCINATE TABLETS [Suspect]
     Active Substance: SUMATRIPTAN SUCCINATE
     Indication: MIGRAINE
     Dosage: ?          QUANTITY:9 TABLET(S);?
     Route: 048
     Dates: start: 20180222, end: 20180223
  2. MULTIVITAMIN [Concomitant]
     Active Substance: VITAMINS
  3. AMITRIPTYLINE [Concomitant]
     Active Substance: AMITRIPTYLINE
  4. FISH OIL [Concomitant]
     Active Substance: FISH OIL

REACTIONS (18)
  - Pain [None]
  - Vomiting [None]
  - Dyspepsia [None]
  - Bacterial infection [None]
  - Decreased appetite [None]
  - Gastroenteritis viral [None]
  - Drug ineffective [None]
  - Dizziness [None]
  - Fatigue [None]
  - Dehydration [None]
  - Asthenia [None]
  - Chills [None]
  - Self-medication [None]
  - Malaise [None]
  - Headache [None]
  - Weight decreased [None]
  - Pyrexia [None]
  - Diarrhoea [None]

NARRATIVE: CASE EVENT DATE: 20180222
